FAERS Safety Report 17970767 (Version 1)
Quarter: 2020Q3

REPORT INFORMATION
  Report Type: Report from Study
  Country: US (occurrence: US)
  Receive Date: 20200701
  Receipt Date: 20200701
  Transmission Date: 20201103
  Serious: No
  Sender: FDA-Public Use
  Company Number: NVSC2020US186005

PATIENT
  Age: 49 Year
  Sex: Female

DRUGS (1)
  1. COSENTYX [Suspect]
     Active Substance: SECUKINUMAB
     Indication: PSORIASIS
     Dosage: 300 MG, Q4W, INJECT 2 PENS (300 MG) SUBCUTANEOUSLY ONCE EVERY 4 WEEKS IN THE ABDOMEN, THIGH, OR OUTE
     Route: 058

REACTIONS (1)
  - Product dose omission issue [Unknown]
